FAERS Safety Report 22002434 (Version 1)
Quarter: 2023Q1

REPORT INFORMATION
  Report Type: Spontaneous
  Country: JP (occurrence: JP)
  Receive Date: 20230217
  Receipt Date: 20230217
  Transmission Date: 20230418
  Serious: No
  Sender: FDA-Public Use
  Company Number: JP-MSD-M2023-05889

PATIENT
  Age: 79 Year
  Sex: Female

DRUGS (1)
  1. LAGEVRIO [Suspect]
     Active Substance: MOLNUPIRAVIR
     Indication: COVID-19 treatment
     Dosage: TOOK 40 CAPSULES PER BOTTLE IN 3 DAYS
     Route: 048

REACTIONS (2)
  - Overdose [Unknown]
  - Incorrect product administration duration [Unknown]
